FAERS Safety Report 8396289-7 (Version None)
Quarter: 2012Q2

REPORT INFORMATION
  Report Type: 
  Country: None (occurrence: None)
  Receive Date: 20120530
  Receipt Date: 20120518
  Transmission Date: 20120825
  Serious: Yes (Other)
  Sender: FDA-Public Use
  Company Number: US-ELI_LILLY_AND_COMPANY-US201201000884

PATIENT
  Sex: Female

DRUGS (6)
  1. FORTEO [Suspect]
     Dosage: 20 UG, QD
     Route: 065
  2. CYTOXAN [Concomitant]
     Indication: PULMONARY FIBROSIS
  3. FORTEO [Suspect]
     Dosage: 20 UG, QD
     Route: 065
  4. PREDNISONE TAB [Concomitant]
     Indication: PULMONARY FIBROSIS
     Dosage: 50 MG, UNKNOWN
  5. FORTEO [Suspect]
     Indication: OSTEOPENIA
     Dosage: 20 UG, QD
     Dates: start: 20111102
  6. CRESTOR [Concomitant]

REACTIONS (4)
  - ARTHRALGIA [None]
  - OFF LABEL USE [None]
  - PULMONARY FIBROSIS [None]
  - BACK PAIN [None]
